FAERS Safety Report 24372994 (Version 2)
Quarter: 2025Q1

REPORT INFORMATION
  Report Type: Report from Study
  Country: US (occurrence: US)
  Receive Date: 20240927
  Receipt Date: 20250131
  Transmission Date: 20250409
  Serious: No
  Sender: SUNOVION
  Company Number: US-SMPA-2024SPA002646AA

PATIENT

DRUGS (2)
  1. ORGOVYX [Suspect]
     Active Substance: RELUGOLIX
     Indication: Prostate cancer
     Dosage: 360 MG, SINGLE
     Route: 048
     Dates: start: 20240713, end: 20240713
  2. ORGOVYX [Suspect]
     Active Substance: RELUGOLIX
     Dosage: 120 MG, QD
     Route: 048
     Dates: start: 20240714

REACTIONS (7)
  - Vitamin D deficiency [Unknown]
  - Hepatic enzyme increased [Unknown]
  - Hyperphagia [Unknown]
  - Blood iron decreased [Unknown]
  - Blood glucose increased [Unknown]
  - Hot flush [Unknown]
  - Fatigue [Unknown]
